FAERS Safety Report 18366229 (Version 1)
Quarter: 2020Q4

REPORT INFORMATION
  Report Type: Spontaneous
  Country: GB (occurrence: GB)
  Receive Date: 20201009
  Receipt Date: 20201009
  Transmission Date: 20210114
  Serious: Yes (Death, Hospitalization)
  Sender: FDA-Public Use
  Company Number: GB-PFIZER INC-2020388591

PATIENT
  Sex: Female

DRUGS (5)
  1. BUPRENORPHINE. [Suspect]
     Active Substance: BUPRENORPHINE
     Dosage: UNK
     Dates: start: 2017
  2. COCODAMOL [Suspect]
     Active Substance: ACETAMINOPHEN\CODEINE PHOSPHATE
     Dosage: 8 DF, DAILY
  3. GABAPENTIN. [Suspect]
     Active Substance: GABAPENTIN
     Dosage: 9 DF, DAILY
  4. MORPHINE SULFATE. [Suspect]
     Active Substance: MORPHINE SULFATE
     Dosage: UNK
  5. BUPRENORPHINE. [Suspect]
     Active Substance: BUPRENORPHINE
     Dosage: 20 UG, DAILY
     Dates: start: 201005

REACTIONS (24)
  - Atrial fibrillation [Fatal]
  - Colitis ulcerative [Fatal]
  - Hallucination [Unknown]
  - Nausea [Unknown]
  - Dementia [Fatal]
  - Paraesthesia [Unknown]
  - Impaired healing [Unknown]
  - Abnormal loss of weight [Unknown]
  - Vomiting [Unknown]
  - Decreased appetite [Unknown]
  - Asthenia [Unknown]
  - Brain injury [Unknown]
  - Dizziness [Unknown]
  - Toxicity to various agents [Unknown]
  - Drug dependence [Unknown]
  - Fall [Unknown]
  - Myalgia [Unknown]
  - Arthralgia [Unknown]
  - Mental disorder [Unknown]
  - Somnolence [Unknown]
  - Confusional state [Unknown]
  - Stereotypy [Unknown]
  - Dysphagia [Unknown]
  - Amnesia [Unknown]

NARRATIVE: CASE EVENT DATE: 2015
